FAERS Safety Report 10188664 (Version 1)
Quarter: 2014Q2

REPORT INFORMATION
  Report Type: Spontaneous
  Country: US (occurrence: US)
  Receive Date: 20140522
  Receipt Date: 20140522
  Transmission Date: 20141212
  Serious: No
  Sender: FDA-Public Use
  Company Number: US-SA-2014SA018065

PATIENT
  Age: 67 Year
  Sex: Male

DRUGS (8)
  1. LANTUS [Suspect]
     Indication: DIABETES MELLITUS
     Dosage: ROUTE - ONCE A DAY DOSE:48 UNIT(S)
     Route: 051
     Dates: start: 20140125, end: 20140205
  2. LANTUS [Suspect]
     Indication: DIABETES MELLITUS
     Route: 051
     Dates: start: 20140211, end: 20140212
  3. ALL OTHER THERAPEUTIC PRODUCTS [Concomitant]
     Indication: DIABETES MELLITUS
  4. METFORMIN [Concomitant]
     Indication: DIABETES MELLITUS
  5. GLYBURIDE [Concomitant]
     Indication: DIABETES MELLITUS
  6. LOSARTAN [Concomitant]
     Indication: BLOOD PRESSURE
  7. LEVOTHYROXINE [Concomitant]
     Indication: THYROID DISORDER
  8. METOPROLOL [Concomitant]
     Indication: BLOOD PRESSURE

REACTIONS (3)
  - Hypoacusis [Unknown]
  - Blood glucose increased [Recovered/Resolved]
  - Drug ineffective [Unknown]
